FAERS Safety Report 9656571 (Version 1)
Quarter: 2013Q4

REPORT INFORMATION
  Report Type: Spontaneous
  Country: US (occurrence: US)
  Receive Date: 20131030
  Receipt Date: 20131030
  Transmission Date: 20140711
  Serious: No
  Sender: FDA-Public Use
  Company Number: US-GLAXOSMITHKLINE-A0993679A

PATIENT
  Age: 48 Year
  Sex: Male

DRUGS (9)
  1. SEREVENT [Suspect]
     Indication: CHRONIC OBSTRUCTIVE PULMONARY DISEASE
     Dosage: 1PUFF TWICE PER DAY
     Route: 055
     Dates: start: 20120908, end: 20120909
  2. LANTUS [Concomitant]
  3. CITALOPRAM [Concomitant]
  4. OMEPRAZOLE [Concomitant]
  5. CRESTOR [Concomitant]
  6. METFORMIN [Concomitant]
  7. FENOFIBRATE [Concomitant]
  8. GLIPIZIDE [Concomitant]
  9. WELLBUTRIN SR [Concomitant]

REACTIONS (6)
  - Hypersensitivity [Recovered/Resolved]
  - Nausea [Unknown]
  - Dizziness [Unknown]
  - Urticaria [Unknown]
  - Dyspnoea [Unknown]
  - Tremor [Unknown]
